FAERS Safety Report 7721168-5 (Version None)
Quarter: 2011Q3

REPORT INFORMATION
  Report Type: 
  Country: None (occurrence: None)
  Receive Date: 20110825
  Receipt Date: 20110815
  Transmission Date: 20111222
  Serious: No
  Sender: FDA-Public Use
  Company Number: 15979883

PATIENT

DRUGS (4)
  1. APIXABAN [Suspect]
     Indication: EMBOLISM
  2. WARFARIN SODIUM [Suspect]
     Indication: EMBOLISM
  3. PLACEBO [Suspect]
     Indication: EMBOLISM
  4. ENOXAPARIN SODIUM [Suspect]
     Indication: EMBOLISM

REACTIONS (1)
  - EMBOLISM VENOUS [None]
